FAERS Safety Report 9449704 (Version 1)
Quarter: 2013Q3

REPORT INFORMATION
  Report Type: Spontaneous
  Country: IT (occurrence: IT)
  Receive Date: 20130809
  Receipt Date: 20130809
  Transmission Date: 20140515
  Serious: Yes (Hospitalization)
  Sender: FDA-Public Use
  Company Number: IT-ROCHE-1259654

PATIENT
  Age: 43 Year
  Sex: Female

DRUGS (1)
  1. RIVOTRIL [Suspect]
     Indication: PRODUCT USED FOR UNKNOWN INDICATION
     Dosage: 10 ML GTT
     Route: 048
     Dates: start: 20130529, end: 20130529

REACTIONS (4)
  - Aphasia [Unknown]
  - Depression [Unknown]
  - Sopor [Unknown]
  - Drug abuse [Unknown]
